FAERS Safety Report 15866992 (Version 1)
Quarter: 2019Q1

REPORT INFORMATION
  Report Type: Spontaneous
  Country: FR (occurrence: FR)
  Receive Date: 20190125
  Receipt Date: 20190125
  Transmission Date: 20190417
  Serious: Yes (Hospitalization)
  Sender: FDA-Public Use
  Company Number: FR-ACCORD-103295

PATIENT
  Age: 77 Year
  Sex: Male
  Weight: 80 kg

DRUGS (10)
  1. ERBITUX [Suspect]
     Active Substance: CETUXIMAB
     Indication: COLORECTAL ADENOCARCINOMA
     Route: 042
  2. XANAX [Concomitant]
     Active Substance: ALPRAZOLAM
  3. DERMOVAL [Concomitant]
  4. BUCCOBET [Concomitant]
  5. JANUMET [Concomitant]
     Active Substance: METFORMIN HYDROCHLORIDE\SITAGLIPTIN PHOSPHATE
  6. MAXIDEX [Concomitant]
     Active Substance: DEXAMETHASONE
  7. FOLIC ACID. [Concomitant]
     Active Substance: FOLIC ACID
  8. INEXIUM [Concomitant]
     Active Substance: ESOMEPRAZOLE
  9. FLUOROURACIL ACCORD [Suspect]
     Active Substance: FLUOROURACIL
     Indication: COLORECTAL ADENOCARCINOMA
     Route: 042
  10. CAMPTO [Suspect]
     Active Substance: IRINOTECAN
     Indication: COLORECTAL ADENOCARCINOMA
     Route: 042

REACTIONS (6)
  - Stomatitis [Recovering/Resolving]
  - Balanoposthitis [Recovering/Resolving]
  - Genital erythema [Recovering/Resolving]
  - Skin fissures [Recovering/Resolving]
  - Proctitis [Recovering/Resolving]
  - Anal inflammation [Recovering/Resolving]

NARRATIVE: CASE EVENT DATE: 20180312
